FAERS Safety Report 7748792 (Version 3)
Quarter: 2014Q3

REPORT INFORMATION
  Report Type: Report from Study
  Country: CH (occurrence: CH)
  Receive Date: 20110105
  Receipt Date: 20140905
  Transmission Date: 20150326
  Serious: Yes (Hospitalization)
  Sender: FDA-Public Use
  Company Number: PHHO2010CH17141

PATIENT
  Age: 54 Year
  Sex: Male
  Weight: 73 kg

DRUGS (4)
  1. EVEROLIMUS [Suspect]
     Active Substance: EVEROLIMUS
     Indication: RENAL TRANSPLANT
     Dosage: 3.5 MG, QD
     Route: 048
     Dates: start: 20100216
  2. SPIRICORT [Suspect]
     Active Substance: PREDNISOLONE
     Indication: RENAL TRANSPLANT
     Dosage: 5-0-0
     Dates: start: 20091114
  3. MYFORTIC [Suspect]
     Active Substance: MYCOPHENOLATE SODIUM
     Indication: RENAL TRANSPLANT
     Dosage: 720 MG, BID
     Route: 048
     Dates: start: 20091114
  4. PREDNISONE. [Suspect]
     Active Substance: PREDNISONE
     Indication: RENAL TRANSPLANT
     Dosage: 7.5 MG, QD
     Route: 048
     Dates: start: 20091114

REACTIONS (9)
  - Proctitis [Recovered/Resolved]
  - Diarrhoea [Recovered/Resolved]
  - Upper respiratory tract infection [Recovered/Resolved]
  - Infectious colitis [Not Recovered/Not Resolved]
  - Soft tissue infection [Unknown]
  - Rhinitis [Unknown]
  - Pyrexia [Recovered/Resolved]
  - Haematoma infection [Unknown]
  - Rectal perforation [Recovered/Resolved]

NARRATIVE: CASE EVENT DATE: 20101110
